FAERS Safety Report 14638356 (Version 2)
Quarter: 2018Q1

REPORT INFORMATION
  Report Type: Spontaneous
  Country: BR (occurrence: BR)
  Receive Date: 20180314
  Receipt Date: 20180326
  Transmission Date: 20180509
  Serious: Yes (Other)
  Sender: FDA-Public Use
  Company Number: BR-IMPAX LABORATORIES, INC-2018-IPXL-00712

PATIENT
  Age: 9 Year
  Sex: Male

DRUGS (2)
  1. CABERGOLINE. [Suspect]
     Active Substance: CABERGOLINE
     Dosage: 4.5 MG, PER WEEK
     Route: 065
  2. CABERGOLINE. [Suspect]
     Active Substance: CABERGOLINE
     Indication: PROLACTIN-PRODUCING PITUITARY TUMOUR
     Dosage: 1 MG, PER WEEK
     Route: 065

REACTIONS (2)
  - Drug resistance [Unknown]
  - Neoplasm progression [Unknown]
